FAERS Safety Report 9502809 (Version 1)
Quarter: 2013Q1

REPORT INFORMATION
  Report Type: Spontaneous
  Country: US (occurrence: None)
  Receive Date: 20130107
  Receipt Date: 20130107
  Transmission Date: 20140127
  Serious: No
  Sender: FDA-Public Use
  Company Number: PHEH2012US018646

PATIENT
  Sex: Female
  Weight: 99.8 kg

DRUGS (6)
  1. GILENYA [Suspect]
     Route: 048
  2. LEXAPRO ( ESCITALOPRAM OXALATE) [Concomitant]
  3. BACLOFEN ( BACLOFEN) [Concomitant]
  4. DIAZEPAM ( DIAZEPAM) [Concomitant]
  5. IBUPROFEN ( IBUPROFEN) [Concomitant]
  6. MOTRIN ( IBUPROFEN) [Concomitant]

REACTIONS (2)
  - Fatigue [None]
  - Asthenia [None]
